FAERS Safety Report 24781708 (Version 1)
Quarter: 2024Q4

REPORT INFORMATION
  Report Type: Spontaneous
  Country: FR (occurrence: FR)
  Receive Date: 20241227
  Receipt Date: 20241227
  Transmission Date: 20250115
  Serious: Yes (Hospitalization, Other)
  Sender: AUROBINDO
  Company Number: FR-AFSSAPS-TS2024001527

PATIENT
  Age: 76 Year
  Sex: Female
  Weight: 98 kg

DRUGS (3)
  1. IRINOTECAN [Suspect]
     Active Substance: IRINOTECAN
     Indication: Rectal adenocarcinoma
     Dosage: 360 MILLIGRAM, CYCLICAL
     Route: 042
     Dates: start: 20240826, end: 20240909
  2. FLUOROURACIL [Concomitant]
     Active Substance: FLUOROURACIL
     Indication: Rectal adenocarcinoma
     Dosage: 3950 MILLIGRAM, CYCLICAL
     Route: 042
     Dates: start: 20240826, end: 20240909
  3. OXALIPLATIN [Concomitant]
     Active Substance: OXALIPLATIN
     Indication: Rectal adenocarcinoma
     Dosage: 175 MILLIGRAM, CYCLICAL
     Route: 042
     Dates: start: 20240826, end: 20240909

REACTIONS (3)
  - Hypovolaemic shock [Recovered/Resolved]
  - Bone marrow failure [Recovered/Resolved]
  - Diarrhoea [Recovered/Resolved]

NARRATIVE: CASE EVENT DATE: 20240901
